FAERS Safety Report 10081802 (Version 2)
Quarter: 2014Q2

REPORT INFORMATION
  Report Type: Spontaneous
  Country: US (occurrence: US)
  Receive Date: 20140416
  Receipt Date: 20140501
  Transmission Date: 20141212
  Serious: Yes (Hospitalization)
  Sender: FDA-Public Use
  Company Number: US-SA-2014SA042762

PATIENT
  Age: 70 Year
  Sex: Female
  Weight: 70.7 kg

DRUGS (6)
  1. LANTUS SOLOSTAR [Suspect]
     Indication: TYPE 2 DIABETES MELLITUS
     Dosage: DOSE:20 UNIT(S)
     Route: 058
  2. SOLOSTAR [Concomitant]
  3. WARFARIN [Concomitant]
     Indication: THROMBOSIS
     Dosage: 1 EVERY 2 MONTHS, WHEN TAKEN OFF, SO SHE MUST KEEP TAKING WARFARIN DAILY
  4. METFORMIN HYDROCHLORIDE [Concomitant]
     Dosage: STRENGTH: 500 MG
  5. GABAPENTIN [Concomitant]
     Indication: NEUROPATHY PERIPHERAL
     Dosage: STRENGTH: 100 MCG
  6. SYNTHROID [Concomitant]
     Dosage: STRENGTH: 150 MCG

REACTIONS (2)
  - Fall [Unknown]
  - Back pain [Not Recovered/Not Resolved]
